FAERS Safety Report 7975102-3 (Version None)
Quarter: 2011Q4

REPORT INFORMATION
  Report Type: 
  Country: None (occurrence: None)
  Receive Date: 20111213
  Receipt Date: 20111031
  Transmission Date: 20120403
  Serious: Yes (Other)
  Sender: FDA-Public Use
  Company Number: US-AMGEN-USASP2011056300

PATIENT
  Age: 58 Year
  Sex: Female

DRUGS (3)
  1. PREDNISONE TAB [Concomitant]
     Dosage: UNK
  2. ENBREL [Suspect]
     Indication: RHEUMATOID ARTHRITIS
     Dosage: UNK
     Dates: start: 20110101, end: 20110101
  3. METHOTREXATE [Concomitant]
     Dosage: UNK

REACTIONS (3)
  - LIVER FUNCTION TEST ABNORMAL [None]
  - HEPATITIS C [None]
  - HEPATITIS B [None]
